FAERS Safety Report 20737326 (Version 3)
Quarter: 2022Q2

REPORT INFORMATION
  Report Type: Spontaneous
  Country: US (occurrence: None)
  Receive Date: 20220421
  Receipt Date: 20220526
  Transmission Date: 20220721
  Serious: Yes (Hospitalization, Other)
  Sender: FDA-Public Use
  Company Number: 2022A150772

PATIENT
  Age: 818 Month
  Sex: Female
  Weight: 77.1 kg

DRUGS (3)
  1. BYDUREON BCISE [Suspect]
     Active Substance: EXENATIDE
     Indication: Diabetes mellitus
     Route: 058
  2. BYDUREON [Suspect]
     Active Substance: EXENATIDE
     Indication: Diabetes mellitus
     Route: 058
  3. BYETTA [Suspect]
     Active Substance: EXENATIDE
     Indication: Diabetes mellitus
     Dosage: UNKNOWN
     Route: 058

REACTIONS (19)
  - Cerebrovascular accident [Unknown]
  - Renal failure [Unknown]
  - Cardiac arrest [Unknown]
  - Hepatitis [Unknown]
  - Memory impairment [Unknown]
  - Thrombosis [Unknown]
  - Asthma [Unknown]
  - Swelling face [Unknown]
  - Swollen tongue [Unknown]
  - Back injury [Unknown]
  - Liver injury [Unknown]
  - Erythema [Unknown]
  - Abulia [Unknown]
  - Weight decreased [Unknown]
  - Injection site mass [Unknown]
  - Weight increased [Unknown]
  - Injection site haemorrhage [Unknown]
  - Product dose omission issue [Unknown]
  - Device leakage [Unknown]

NARRATIVE: CASE EVENT DATE: 20211001
